FAERS Safety Report 21336073 (Version 1)
Quarter: 2022Q3

REPORT INFORMATION
  Report Type: Report from Study
  Country: US (occurrence: US)
  Receive Date: 20220915
  Receipt Date: 20220915
  Transmission Date: 20221027
  Serious: Yes (Life-Threatening, Hospitalization)
  Sender: FDA-Public Use
  Company Number: US-JNJFOC-20220864331

PATIENT
  Age: 76 Year
  Sex: Male
  Weight: 77 kg

DRUGS (7)
  1. ABIRATERONE ACETATE [Suspect]
     Active Substance: ABIRATERONE ACETATE
     Indication: Prostate cancer metastatic
     Dosage: DATE OF LAST DOSE BEFORE SAE 12-08-2022
     Route: 048
     Dates: start: 20220708, end: 20220804
  2. ABIRATERONE ACETATE [Suspect]
     Active Substance: ABIRATERONE ACETATE
     Route: 048
     Dates: start: 20220831
  3. ABEMACICLIB [Suspect]
     Active Substance: ABEMACICLIB
     Indication: Prostate cancer metastatic
     Dosage: DATE OF LAST DOSE BEFORE SAE 04-08-2022
     Route: 065
     Dates: start: 20220708, end: 20220902
  4. PREDNISONE [Suspect]
     Active Substance: PREDNISONE
     Indication: Prostate cancer metastatic
     Dosage: DATE OF LAST DOSE BEFORE SAE 12-08-2022
     Route: 048
     Dates: end: 20220812
  5. PREDNISONE [Suspect]
     Active Substance: PREDNISONE
     Dosage: DATE OF LAST DOSE BEFORE SAE 12-08-2022
     Route: 048
     Dates: start: 20220831
  6. ESOMEPRAZOLE SODIUM [Concomitant]
     Active Substance: ESOMEPRAZOLE SODIUM
     Indication: Prophylaxis against gastrointestinal ulcer
     Route: 065
     Dates: start: 20220812, end: 20220814
  7. VITAMIN C [Concomitant]
     Active Substance: ASCORBIC ACID
     Indication: Product used for unknown indication
     Route: 065
     Dates: start: 20220812, end: 20220812

REACTIONS (1)
  - Pneumonia [Recovered/Resolved]

NARRATIVE: CASE EVENT DATE: 20220812
